FAERS Safety Report 15610750 (Version 1)
Quarter: 2018Q4

REPORT INFORMATION
  Report Type: Spontaneous
  Country: US (occurrence: US)
  Receive Date: 20181113
  Receipt Date: 20181113
  Transmission Date: 20190205
  Serious: No
  Sender: FDA-Public Use
  Company Number: US-ROCHE-2162346

PATIENT
  Age: 54 Year
  Sex: Female
  Weight: 87.62 kg

DRUGS (7)
  1. LIPITOR [Concomitant]
     Active Substance: ATORVASTATIN CALCIUM
     Indication: BLOOD CHOLESTEROL INCREASED
     Dosage: ONGOING: YES
     Route: 048
     Dates: start: 2012
  2. WELLBUTRIN XL [Concomitant]
     Active Substance: BUPROPION HYDROCHLORIDE
     Dosage: YES
     Route: 048
  3. PERJETA [Suspect]
     Active Substance: PERTUZUMAB
     Indication: BREAST CANCER METASTATIC
     Dosage: GIVEN THROUGH PORT ;ONGOING: YES
     Route: 042
     Dates: start: 201710
  4. HERCEPTIN [Suspect]
     Active Substance: TRASTUZUMAB
     Indication: BREAST CANCER METASTATIC
     Dosage: GIVEN THROUGH PORT ;ONGOING: YES
     Route: 042
     Dates: start: 201710
  5. ATIVAN [Concomitant]
     Active Substance: LORAZEPAM
     Indication: ANXIETY
     Dosage: YES
     Route: 048
     Dates: start: 200703
  6. LAMICTAL [Concomitant]
     Active Substance: LAMOTRIGINE
     Indication: BIPOLAR DISORDER
     Dosage: YES
     Route: 048
     Dates: start: 200703
  7. XGEVA [Concomitant]
     Active Substance: DENOSUMAB
     Indication: METASTASES TO BONE
     Dosage: GIVEN IN ABDOMEN ;ONGOING: YES
     Route: 065

REACTIONS (3)
  - Ill-defined disorder [Unknown]
  - Pruritus [Not Recovered/Not Resolved]
  - Amnesia [Unknown]

NARRATIVE: CASE EVENT DATE: 201806
